FAERS Safety Report 6608133-6 (Version None)
Quarter: 2010Q1

REPORT INFORMATION
  Report Type: 
  Country: None (occurrence: None)
  Receive Date: 20100301
  Receipt Date: 20100222
  Transmission Date: 20100710
  Serious: Yes (Death)
  Sender: FDA-Public Use
  Company Number: CHPA2010US03846

PATIENT
  Age: 55 Year
  Sex: Female

DRUGS (3)
  1. ACETYLSALICYLIC ACID SRT [Suspect]
     Dosage: UNK, UNK
     Route: 048
  2. ACETAMINOPHEN [Suspect]
     Dosage: UNK, UNK
     Route: 048
  3. ANTIHISTAMINES [Suspect]
     Dosage: UNK, UNK
     Route: 048

REACTIONS (7)
  - CARDIAC ARREST [None]
  - COMPLETED SUICIDE [None]
  - CONFUSIONAL STATE [None]
  - GRAND MAL CONVULSION [None]
  - PULMONARY OEDEMA [None]
  - PYREXIA [None]
  - THERAPEUTIC AGENT TOXICITY [None]
